FAERS Safety Report 5887314-3 (Version None)
Quarter: 2008Q3

REPORT INFORMATION
  Report Type: 
  Country: None (occurrence: None)
  Receive Date: 20080918
  Receipt Date: 20080912
  Transmission Date: 20090109
  Serious: Yes (Hospitalization)
  Sender: FDA-Public Use
  Company Number: ES-JNJFOC-20080902566

PATIENT
  Age: 65 Year
  Sex: Male
  Weight: 90 kg

DRUGS (5)
  1. REMICADE [Suspect]
     Indication: PUSTULAR PSORIASIS
     Route: 042
  2. REMICADE [Suspect]
     Indication: ARTHRITIS
     Route: 042
  3. METHOTREXATE [Concomitant]
     Route: 048
  4. DACORTIN [Concomitant]
     Route: 048
  5. SANDIMMUNE [Concomitant]
     Route: 048

REACTIONS (1)
  - HERPES ZOSTER [None]
